FAERS Safety Report 6136685-1 (Version None)
Quarter: 2009Q1

REPORT INFORMATION
  Report Type: 
  Country: None (occurrence: None)
  Receive Date: 20090330
  Receipt Date: 20090316
  Transmission Date: 20090719
  Serious: Yes (Other)
  Sender: FDA-Public Use
  Company Number: AU-PFIZER INC-2009186890

PATIENT

DRUGS (6)
  1. SERTRALINE HCL [Suspect]
     Indication: MANIA
     Dosage: 200 MG, UNK
  2. SERTRALINE HCL [Suspect]
     Indication: MAJOR DEPRESSION
  3. LAMOTRIGINE [Suspect]
     Indication: MANIA
     Dosage: 300 MG, UNK
  4. DIVALPROEX SODIUM [Suspect]
     Indication: BIPOLAR DISORDER
     Dosage: 750 MG, 1X/DAY
  5. LEVOSULPIRIDE [Suspect]
     Indication: MANIA
     Dosage: 400 MG, UNK
  6. OLANZAPINE [Concomitant]
     Dosage: 10 MG, UNK

REACTIONS (2)
  - DRUG INEFFECTIVE [None]
  - TARDIVE DYSKINESIA [None]
